FAERS Safety Report 6183867-9 (Version None)
Quarter: 2009Q2

REPORT INFORMATION
  Report Type: 
  Country: None (occurrence: None)
  Receive Date: 20090508
  Receipt Date: 20090428
  Transmission Date: 20091009
  Serious: Yes (Hospitalization, Other)
  Sender: FDA-Public Use
  Company Number: US-PFIZER INC-2007014301

PATIENT
  Sex: Female
  Weight: 56 kg

DRUGS (15)
  1. CHANTIX [Suspect]
     Indication: SMOKING CESSATION THERAPY
     Dosage: 1 MG, 2X/DAY
     Dates: start: 20070101, end: 20070317
  2. SPIRIVA [Interacting]
     Route: 055
     Dates: start: 20060101
  3. ALL OTHER THERAPEUTIC PRODUCTS [Suspect]
     Dosage: UNK
  4. ALBUTEROL [Interacting]
     Indication: ASTHMA
     Dosage: PRN
     Route: 055
  5. ADVAIR DISKUS 100/50 [Interacting]
     Indication: ASTHMA
     Dosage: UNK
     Dates: start: 20060101, end: 20070315
  6. ATROVENT [Interacting]
     Indication: ASTHMA
     Dates: start: 20070101
  7. KLONOPIN [Concomitant]
  8. LAMICTAL [Concomitant]
  9. PRIMIDONE [Concomitant]
     Route: 048
  10. PROTONIX [Concomitant]
  11. PEPCID [Concomitant]
  12. SEROQUEL [Concomitant]
  13. RESTORIL [Concomitant]
  14. MAVIK [Concomitant]
  15. NORVASC [Concomitant]

REACTIONS (29)
  - ASTHENIA [None]
  - BIPOLAR I DISORDER [None]
  - BLOOD CHOLESTEROL INCREASED [None]
  - BLOOD GLUCOSE INCREASED [None]
  - BLOOD SODIUM DECREASED [None]
  - BRONCHITIS [None]
  - BURNING SENSATION [None]
  - CARDIAC DISORDER [None]
  - CHEST PAIN [None]
  - CLUMSINESS [None]
  - CONVULSION [None]
  - COUGH [None]
  - DELUSION [None]
  - DEPRESSED MOOD [None]
  - DRUG INTERACTION [None]
  - DYSPEPSIA [None]
  - DYSPNOEA [None]
  - FATIGUE [None]
  - HOT FLUSH [None]
  - HYPERHIDROSIS [None]
  - INSOMNIA [None]
  - INTERVERTEBRAL DISC PROTRUSION [None]
  - MELAENA [None]
  - MOBILITY DECREASED [None]
  - NAUSEA [None]
  - PNEUMONIA VIRAL [None]
  - STRESS [None]
  - SUDDEN ONSET OF SLEEP [None]
  - WEIGHT INCREASED [None]
